FAERS Safety Report 25227346 (Version 1)
Quarter: 2025Q2

REPORT INFORMATION
  Report Type: Spontaneous
  Country: JP (occurrence: JP)
  Receive Date: 20250422
  Receipt Date: 20250422
  Transmission Date: 20250716
  Serious: Yes (Hospitalization, Other)
  Sender: MERCK SHARP & DOHME LLC
  Company Number: JP-009507513-2263318

PATIENT
  Age: 69 Year
  Sex: Female

DRUGS (1)
  1. BELSOMRA [Suspect]
     Active Substance: SUVOREXANT
     Indication: Insomnia
     Route: 048
     Dates: start: 20250303, end: 20250304

REACTIONS (3)
  - Cellulitis [Unknown]
  - Nightmare [Recovered/Resolved]
  - Hallucination, auditory [Unknown]

NARRATIVE: CASE EVENT DATE: 20250225
